FAERS Safety Report 9854932 (Version 1)
Quarter: 2014Q1

REPORT INFORMATION
  Report Type: Spontaneous
  Country: CA (occurrence: CA)
  Receive Date: 20140130
  Receipt Date: 20140130
  Transmission Date: 20141002
  Serious: Yes (Other)
  Sender: FDA-Public Use
  Company Number: CA-ROCHE-1340195

PATIENT
  Sex: Male
  Weight: 86.2 kg

DRUGS (5)
  1. RITUXAN [Suspect]
     Indication: MANTLE CELL LYMPHOMA
     Route: 042
     Dates: start: 2009
  2. RITUXAN [Suspect]
     Route: 042
     Dates: start: 2013
  3. CRESTOR [Concomitant]
  4. FLOMAX (CANADA) [Concomitant]
  5. RHINOCORT [Concomitant]

REACTIONS (2)
  - Skin cancer [Recovered/Resolved]
  - Nasal congestion [Unknown]
